FAERS Safety Report 9900180 (Version 1)
Quarter: 2014Q1

REPORT INFORMATION
  Report Type: Spontaneous
  Country: GB (occurrence: GB)
  Receive Date: 20140214
  Receipt Date: 20140214
  Transmission Date: 20141002
  Serious: Yes (Hospitalization)
  Sender: FDA-Public Use
  Company Number: GB-ABBVIE-14P-167-1200762-00

PATIENT
  Age: 38 Year
  Sex: Female
  Weight: 88.1 kg

DRUGS (1)
  1. HUMIRA [Suspect]
     Indication: PSORIASIS
     Route: 058
     Dates: start: 20091201, end: 20121212

REACTIONS (3)
  - Cough [Recovering/Resolving]
  - Viral infection [Recovering/Resolving]
  - Dyspnoea [Recovering/Resolving]
